FAERS Safety Report 6577688-2 (Version None)
Quarter: 2010Q1

REPORT INFORMATION
  Report Type: 
  Country: None (occurrence: None)
  Receive Date: 20100211
  Receipt Date: 20100208
  Transmission Date: 20100710
  Serious: Yes (Death, Hospitalization)
  Sender: FDA-Public Use
  Company Number: PHHY2010MX02904

PATIENT
  Age: 89 Year
  Sex: Female

DRUGS (1)
  1. ZELMAC [Suspect]
     Indication: IRRITABLE BOWEL SYNDROME
     Dosage: 6 MG,1 TABLET DAILY
     Route: 048
     Dates: start: 20050801, end: 20100110

REACTIONS (3)
  - BRONCHITIS [None]
  - CARDIO-RESPIRATORY ARREST [None]
  - COLLAPSE OF LUNG [None]
